FAERS Safety Report 12971998 (Version 1)
Quarter: 2016Q4

REPORT INFORMATION
  Report Type: Report from Study
  Country: None (occurrence: US)
  Receive Date: 20161124
  Receipt Date: 20161124
  Transmission Date: 20170207
  Serious: Yes (Hospitalization, Disabling, Other)
  Sender: FDA-Public Use
  Company Number: US-ABBVIE-16K-163-1718632-00

PATIENT
  Sex: Female
  Weight: 113.5 kg

DRUGS (1)
  1. HUMIRA [Suspect]
     Active Substance: ADALIMUMAB
     Indication: RHEUMATOID ARTHRITIS
     Route: 058
     Dates: start: 201509, end: 201605

REACTIONS (12)
  - Post procedural complication [Recovered/Resolved]
  - Device related infection [Recovered/Resolved]
  - Post procedural infection [Unknown]
  - Speech disorder [Not Recovered/Not Resolved]
  - Hypophagia [Not Recovered/Not Resolved]
  - Post procedural swelling [Recovered/Resolved]
  - Obstructive airways disorder [Recovered/Resolved]
  - Streptococcal abscess [Not Recovered/Not Resolved]
  - Bacterial infection [Recovered/Resolved]
  - Post procedural infection [Not Recovered/Not Resolved]
  - Weight decreased [Not Recovered/Not Resolved]
  - Tooth infection [Recovered/Resolved]

NARRATIVE: CASE EVENT DATE: 2016
